FAERS Safety Report 5406958-6 (Version None)
Quarter: 2007Q3

REPORT INFORMATION
  Report Type: 
  Country: None (occurrence: None)
  Receive Date: 20070803
  Receipt Date: 20070803
  Transmission Date: 20080115
  Serious: Yes (Other)
  Sender: FDA-Public Use
  Company Number: None

PATIENT
  Sex: Female

DRUGS (1)
  1. OPTIRAY 320 [Suspect]
     Indication: DIAGNOSTIC PROCEDURE
     Dates: start: 20070627, end: 20070627

REACTIONS (2)
  - RASH [None]
  - SWELLING FACE [None]
